FAERS Safety Report 8389361-9 (Version None)
Quarter: 2012Q2

REPORT INFORMATION
  Report Type: 
  Country: None (occurrence: None)
  Receive Date: 20120528
  Receipt Date: 20120523
  Transmission Date: 20120825
  Serious: Yes (Other)
  Sender: FDA-Public Use
  Company Number: US-AMGEN-USASP2012030468

PATIENT
  Sex: Female
  Weight: 53.061 kg

DRUGS (11)
  1. PROLIA [Suspect]
     Indication: OSTEOPOROSIS POSTMENOPAUSAL
     Dosage: 1 MG, ONE TIME DOSE
     Route: 058
     Dates: start: 20120223
  2. METRONIDAZOLE [Concomitant]
     Dosage: 0.75 %, BID
     Route: 061
     Dates: end: 20120301
  3. GLUCOSAMINE MSM [Concomitant]
     Dosage: UNK
     Route: 048
     Dates: end: 20120301
  4. ASPIRIN [Concomitant]
     Dosage: 81 MG, QD
     Route: 048
     Dates: end: 20120301
  5. LOPID [Concomitant]
     Dosage: 600 MG, BID
     Route: 048
     Dates: start: 20120301, end: 20120301
  6. METOCLOPRAMIDE HYDROCHLORIDE [Concomitant]
     Dosage: 10 MG, BID
     Route: 048
     Dates: end: 20120301
  7. ADVAIR DISKUS 100/50 [Concomitant]
     Dosage: UNK
     Dates: end: 20120301
  8. CALCIUM AND VIT D [Concomitant]
     Dosage: UNK
     Route: 048
     Dates: end: 20120301
  9. METRONIDAZOLE [Concomitant]
     Dosage: 500 MG, TID
     Route: 048
  10. CLOBETASOL PROPION [Concomitant]
     Dosage: 0.05 %, QWK
     Route: 061
     Dates: end: 20120301
  11. OMEPRAZOLE [Concomitant]
     Dosage: 40 MG, QHS
     Route: 048
     Dates: end: 20120301

REACTIONS (9)
  - DRY EYE [None]
  - RHINORRHOEA [None]
  - SWELLING FACE [None]
  - FATIGUE [None]
  - DYSPHONIA [None]
  - HYPOTHYROIDISM [None]
  - NECK PAIN [None]
  - FEELING COLD [None]
  - EYELID PTOSIS [None]
